FAERS Safety Report 8846497 (Version 1)
Quarter: 2012Q4

REPORT INFORMATION
  Report Type: 
  Country: US (occurrence: US)
  Receive Date: 20121017
  Receipt Date: 20121017
  Transmission Date: 20130627
  Serious: No
  Sender: FDA-Public Use
  Company Number: US-GLAXOSMITHKLINE-A0945000A

PATIENT
  Age: 31 Year
  Sex: Female

DRUGS (1)
  1. CEFTIN [Suspect]
     Indication: PRODUCT USED FOR UNKNOWN INDICATION
     Route: 065

REACTIONS (3)
  - Red man syndrome [Unknown]
  - Erythema [Unknown]
  - Nonspecific reaction [Unknown]
